FAERS Safety Report 4594976-X (Version None)
Quarter: 2005Q1

REPORT INFORMATION
  Report Type: 
  Country: None (occurrence: None)
  Receive Date: 20050223
  Receipt Date: 20050210
  Transmission Date: 20050727
  Serious: Yes (Other)
  Sender: FDA-Public Use
  Company Number: 2005029143

PATIENT
  Sex: Female

DRUGS (1)
  1. CELEBRA [Suspect]
     Indication: HEADACHE
     Dosage: 100 MG (100 MG, 1 IN 1 D), ORAL
     Route: 048
     Dates: start: 20040701, end: 20050201

REACTIONS (4)
  - CHEST PAIN [None]
  - PARAESTHESIA [None]
  - PARAESTHESIA ORAL [None]
  - TINNITUS [None]
